FAERS Safety Report 5214540-9 (Version None)
Quarter: 2007Q1

REPORT INFORMATION
  Report Type: 
  Country: None (occurrence: None)
  Receive Date: 20070122
  Receipt Date: 20070111
  Transmission Date: 20070707
  Serious: Yes (Hospitalization)
  Sender: FDA-Public Use
  Company Number: US-BRISTOL-MYERS SQUIBB COMPANY-13639984

PATIENT
  Age: 76 Year
  Sex: Female
  Weight: 77 kg

DRUGS (10)
  1. COUMADIN [Suspect]
     Indication: DEEP VEIN THROMBOSIS
     Dosage: 5MG FOR 6 DAYS 3MG FOR 1D, CHANGED 7.5MG FOR 4DS 5MG FOR 3DS, CHGD TO 7.5MG FOR 5DS AND 5MG FOR 2DS
     Dates: start: 19900101
  2. BONIVA [Concomitant]
  3. SYNTHROID [Concomitant]
  4. PREVACID [Concomitant]
     Dates: start: 20061001
  5. ADVAIR DISKUS 100/50 [Concomitant]
     Dosage: 500/50
     Route: 055
     Dates: start: 20061001
  6. SPIRIVA [Concomitant]
     Dates: start: 20061001
  7. LIPITOR [Concomitant]
  8. ATENOLOL [Concomitant]
  9. DOCUSATE SODIUM [Concomitant]
  10. CALCIUM + VITAMIN D [Concomitant]

REACTIONS (2)
  - INTERNATIONAL NORMALISED RATIO DECREASED [None]
  - PNEUMONIA [None]
